FAERS Safety Report 5148145-5 (Version None)
Quarter: 2006Q4

REPORT INFORMATION
  Report Type: 
  Country: None (occurrence: None)
  Receive Date: 20061110
  Receipt Date: 20061102
  Transmission Date: 20070319
  Serious: Yes (Disabling)
  Sender: FDA-Public Use
  Company Number: GB-ROCHE-470233

PATIENT
  Sex: Female
  Weight: 50.8 kg

DRUGS (8)
  1. BONIVA [Suspect]
     Indication: OSTEOPOROSIS
     Route: 048
     Dates: start: 20060401, end: 20060801
  2. ADIZEM-XL [Concomitant]
     Route: 048
  3. ASPIRIN [Concomitant]
  4. ATENOLOL [Concomitant]
     Route: 048
  5. ACETAMINOPHEN W/ CODEINE [Concomitant]
  6. MONOSORB [Concomitant]
     Route: 048
  7. NICORANDIL [Concomitant]
     Route: 048
  8. PREDNISOLONE [Concomitant]

REACTIONS (2)
  - ACIDOSIS [None]
  - BONE PAIN [None]
